FAERS Safety Report 23238745 (Version 1)
Quarter: 2023Q4

REPORT INFORMATION
  Report Type: Other
  Country: US (occurrence: None)
  Receive Date: 20231129
  Receipt Date: 20231129
  Transmission Date: 20240110
  Serious: Yes (Other)
  Sender: FDA-Public Use
  Company Number: US-ROCHE-3228221

PATIENT
  Age: 29 Year
  Sex: Female
  Weight: 132.57 kg

DRUGS (7)
  1. OCREVUS [Suspect]
     Active Substance: OCRELIZUMAB
     Indication: Relapsing-remitting multiple sclerosis
     Dosage: YES, DATE OF TREATMENT:: 26/MAY/2023, 28/OCT/2022, 14/OCT/2022
     Route: 042
     Dates: start: 20221014
  2. VALACYCLOVIR [Concomitant]
     Active Substance: VALACYCLOVIR HYDROCHLORIDE
  3. ALBUTEROL [Concomitant]
     Active Substance: ALBUTEROL
  4. PANTOPRAZOLE [Concomitant]
     Active Substance: PANTOPRAZOLE
  5. GABAPENTIN [Concomitant]
     Active Substance: GABAPENTIN
  6. TOPAMAX [Concomitant]
     Active Substance: TOPIRAMATE
     Indication: Headache
  7. MAGNESIUM OXIDE [Concomitant]
     Active Substance: MAGNESIUM OXIDE

REACTIONS (18)
  - Syncope [Recovered/Resolved]
  - Tachycardia [Not Recovered/Not Resolved]
  - Dyspnoea [Recovered/Resolved]
  - Urticaria [Recovered/Resolved]
  - Flushing [Recovered/Resolved]
  - Chest pain [Recovered/Resolved]
  - Tongue discomfort [Recovered/Resolved]
  - Abdominal pain upper [Recovered/Resolved]
  - Fall [Unknown]
  - Palpitations [Recovered/Resolved]
  - Autoimmune thyroiditis [Not Recovered/Not Resolved]
  - Dyspnoea [Recovered/Resolved]
  - Postural orthostatic tachycardia syndrome [Not Recovered/Not Resolved]
  - Fatigue [Not Recovered/Not Resolved]
  - Balance disorder [Not Recovered/Not Resolved]
  - Weight decreased [Recovered/Resolved]
  - Cough [Not Recovered/Not Resolved]
  - COVID-19 [Recovered/Resolved]

NARRATIVE: CASE EVENT DATE: 20221028
